FAERS Safety Report 24114090 (Version 1)
Quarter: 2024Q3

REPORT INFORMATION
  Report Type: Report from Study
  Country: US (occurrence: US)
  Receive Date: 20240720
  Receipt Date: 20240720
  Transmission Date: 20241016
  Serious: Yes (Other)
  Sender: ABBVIE
  Company Number: US-ABBVIE-5683342

PATIENT
  Sex: Male
  Weight: 73 kg

DRUGS (4)
  1. RINVOQ [Suspect]
     Active Substance: UPADACITINIB
     Indication: Colitis ulcerative
     Dosage: FORM STRENGTH: 30 MILLIGRAM/DRUG END DATE-2023
     Route: 048
     Dates: start: 20230719
  2. RINVOQ [Suspect]
     Active Substance: UPADACITINIB
     Indication: Colitis ulcerative
     Dosage: FORM STRENGTH: 30 MILLIGRAM
     Route: 048
     Dates: start: 202309
  3. RINVOQ [Suspect]
     Active Substance: UPADACITINIB
     Indication: Colitis ulcerative
     Dosage: FORM STRENGTH: 45 MILLIGRAM
     Route: 048
     Dates: start: 20240613
  4. APIXABAN [Concomitant]
     Active Substance: APIXABAN
     Indication: Product used for unknown indication
     Dosage: FREQUENCY TEXT: 2.5 MG MORNING/ 2.5 MG NIGHT

REACTIONS (32)
  - Accident [Not Recovered/Not Resolved]
  - Dyspnoea [Unknown]
  - Inflammation [Not Recovered/Not Resolved]
  - Frequent bowel movements [Not Recovered/Not Resolved]
  - Anaemia [Not Recovered/Not Resolved]
  - Pallor [Unknown]
  - Gastritis [Unknown]
  - Sensory disturbance [Unknown]
  - Pain in extremity [Not Recovered/Not Resolved]
  - Tachycardia [Unknown]
  - Anxiety [Unknown]
  - Pleuritic pain [Unknown]
  - Peripheral swelling [Unknown]
  - Thrombosis [Not Recovered/Not Resolved]
  - Faeces discoloured [Not Recovered/Not Resolved]
  - Dehydration [Not Recovered/Not Resolved]
  - Fatigue [Not Recovered/Not Resolved]
  - Muscle spasms [Unknown]
  - Haematochezia [Not Recovered/Not Resolved]
  - Rectal haemorrhage [Not Recovered/Not Resolved]
  - Asthenia [Not Recovered/Not Resolved]
  - Defaecation urgency [Unknown]
  - Anorectal discomfort [Recovering/Resolving]
  - Arthralgia [Not Recovered/Not Resolved]
  - Dyspnoea [Recovered/Resolved]
  - Headache [Recovered/Resolved]
  - Gait inability [Unknown]
  - Insomnia [Unknown]
  - Anaemia [Recovered/Resolved]
  - Inflammation [Not Recovered/Not Resolved]
  - Flatulence [Not Recovered/Not Resolved]
  - Angina pectoris [Not Recovered/Not Resolved]

NARRATIVE: CASE EVENT DATE: 20240101
